FAERS Safety Report 12679554 (Version 1)
Quarter: 2016Q3

REPORT INFORMATION
  Report Type: Report from Study
  Country: CO (occurrence: CO)
  Receive Date: 20160824
  Receipt Date: 20160824
  Transmission Date: 20161109
  Serious: Yes (Death)
  Sender: FDA-Public Use
  Company Number: CO-AMGEN-COLSL2016089739

PATIENT
  Age: 80 Year
  Sex: Female

DRUGS (1)
  1. VECTIBIX [Suspect]
     Active Substance: PANITUMUMAB
     Indication: COLORECTAL CANCER METASTATIC
     Dosage: 260 MG (EVERY 20 DAYS)
     Route: 042
     Dates: start: 20160622, end: 20160725

REACTIONS (5)
  - Malaise [Not Recovered/Not Resolved]
  - Death [Fatal]
  - Inappropriate schedule of drug administration [Not Recovered/Not Resolved]
  - Dehydration [Not Recovered/Not Resolved]
  - Haemoglobin decreased [Not Recovered/Not Resolved]

NARRATIVE: CASE EVENT DATE: 2016
